FAERS Safety Report 6774901-3 (Version None)
Quarter: 2010Q2

REPORT INFORMATION
  Report Type: 
  Country: None (occurrence: None)
  Receive Date: 20100617
  Receipt Date: 20100615
  Transmission Date: 20101027
  Serious: Yes (Death, Hospitalization, Disabling)
  Sender: FDA-Public Use
  Company Number: US-SANOFI-AVENTIS-2010SA031867

PATIENT
  Age: 63 Year
  Sex: Female

DRUGS (12)
  1. DOCETAXEL [Suspect]
     Indication: BREAST CANCER
     Route: 042
     Dates: start: 19980501, end: 19980501
  2. DOCETAXEL [Suspect]
     Route: 042
     Dates: start: 19980821, end: 19980821
  3. ADRIAMYCIN PFS [Suspect]
     Indication: BREAST CANCER
     Route: 042
     Dates: start: 19980501, end: 19980821
  4. CYCLOPHOSPHAMIDE [Suspect]
     Indication: BREAST CANCER
     Dates: start: 19980501, end: 19980821
  5. GABAPENTIN [Concomitant]
  6. FELODIPINE [Concomitant]
  7. FUROSEMIDE [Concomitant]
  8. LEVOXYL [Concomitant]
  9. FLOVENT [Concomitant]
  10. ALBUTEROL [Concomitant]
  11. HYDROCODONE BITARTRATE AND ACETAMINOPHEN [Concomitant]
     Indication: PAIN
  12. CIPROFLOXACIN [Concomitant]
     Indication: URINARY TRACT INFECTION

REACTIONS (1)
  - ACUTE MYELOID LEUKAEMIA [None]
